FAERS Safety Report 11825224 (Version 1)
Quarter: 2015Q4

REPORT INFORMATION
  Report Type: Spontaneous
  Country: US (occurrence: None)
  Receive Date: 20151210
  Receipt Date: 20151210
  Transmission Date: 20160305
  Serious: Yes (Disabling)
  Sender: FDA-Public Use
  Company Number: None

PATIENT
  Age: 67 Year
  Sex: Male
  Weight: 87.09 kg

DRUGS (1)
  1. SUCCINYLCHOLINE [Suspect]
     Active Substance: SUCCINYLCHOLINE
     Indication: MUSCLE RELAXANT THERAPY
     Dates: start: 20151203

REACTIONS (9)
  - Neck pain [None]
  - Infrequent bowel movements [None]
  - Myalgia [None]
  - Musculoskeletal pain [None]
  - Paralysis [None]
  - Pain [None]
  - Back pain [None]
  - Anal sphincter hypertonia [None]
  - Chest pain [None]

NARRATIVE: CASE EVENT DATE: 20151203
